FAERS Safety Report 9324511 (Version 1)
Quarter: 2013Q2

REPORT INFORMATION
  Report Type: Spontaneous
  Country: US (occurrence: None)
  Receive Date: 20130531
  Receipt Date: 20130531
  Transmission Date: 20140414
  Serious: No
  Sender: FDA-Public Use
  Company Number: None

PATIENT
  Sex: Male
  Weight: 22.6 kg

DRUGS (2)
  1. OMEPRAZOLE 2 MG/ML [Suspect]
     Indication: GASTROOESOPHAGEAL REFLUX DISEASE
     Route: 048
     Dates: start: 20130211
  2. OMEPRAZOLE 2 MG/ML [Suspect]
     Indication: EPILEPSY
     Route: 048
     Dates: start: 20130211

REACTIONS (1)
  - Ill-defined disorder [None]
